FAERS Safety Report 5044047-3 (Version None)
Quarter: 2006Q3

REPORT INFORMATION
  Report Type: 
  Country: None (occurrence: None)
  Receive Date: 20060706
  Receipt Date: 20060627
  Transmission Date: 20061208
  Serious: Yes (Hospitalization, Other)
  Sender: FDA-Public Use
  Company Number: US-JNJFOC-20060606693

PATIENT
  Sex: Male
  Weight: 64.41 kg

DRUGS (25)
  1. REMICADE [Suspect]
     Route: 042
  2. REMICADE [Suspect]
     Route: 042
  3. REMICADE [Suspect]
     Route: 042
  4. REMICADE [Suspect]
     Route: 042
  5. REMICADE [Suspect]
     Route: 042
  6. REMICADE [Suspect]
     Route: 042
  7. REMICADE [Suspect]
     Route: 042
  8. REMICADE [Suspect]
     Route: 042
  9. REMICADE [Suspect]
     Route: 042
  10. REMICADE [Suspect]
     Route: 042
  11. REMICADE [Suspect]
     Route: 042
  12. REMICADE [Suspect]
     Route: 042
  13. REMICADE [Suspect]
     Route: 042
  14. REMICADE [Suspect]
     Route: 042
  15. REMICADE [Suspect]
     Route: 042
  16. REMICADE [Suspect]
     Route: 042
  17. REMICADE [Suspect]
     Route: 042
  18. REMICADE [Suspect]
     Route: 042
  19. REMICADE [Suspect]
     Route: 042
  20. REMICADE [Suspect]
     Indication: CROHN'S DISEASE
     Dosage: 8 INFUSIONS PRIOR TO BASELINE
     Route: 042
  21. MESALAMINE [Suspect]
     Indication: CROHN'S DISEASE
  22. ANTISPASMODIC [Suspect]
     Indication: CROHN'S DISEASE
  23. PREDNISONE TAB [Suspect]
     Indication: CHRONIC OBSTRUCTIVE PULMONARY DISEASE
  24. FOLIC ACID [Suspect]
     Indication: CROHN'S DISEASE
  25. B-12 [Suspect]
     Indication: CROHN'S DISEASE
     Route: 050

REACTIONS (2)
  - ALCOHOLISM [None]
  - PNEUMONIA [None]
